FAERS Safety Report 12832963 (Version 15)
Quarter: 2020Q3

REPORT INFORMATION
  Report Type: Report from Study
  Country: TR (occurrence: TR)
  Receive Date: 20161010
  Receipt Date: 20180903
  Transmission Date: 20201105
  Serious: Yes (Hospitalization)
  Sender: FDA-Public Use
  Company Number: TR-ROCHE-1802738

PATIENT
  Age: 60 Year
  Sex: Male
  Weight: 78 kg

DRUGS (21)
  1. PANTOPRAZOLE [Concomitant]
     Active Substance: PANTOPRAZOLE
     Indication: GASTROINTESTINAL PAIN
     Route: 065
     Dates: start: 20160620
  2. ALECTINIB. [Suspect]
     Active Substance: ALECTINIB
     Indication: NON-SMALL CELL LUNG CANCER
     Route: 048
     Dates: start: 20160616, end: 20160723
  3. GLICLAZIDE [Concomitant]
     Active Substance: GLICLAZIDE
  4. METHYLPREDNISOLONE SODIUM SUCCINATE. [Concomitant]
     Active Substance: METHYLPREDNISOLONE SODIUM SUCCINATE
     Indication: DYSPNOEA
     Route: 065
     Dates: start: 20160711, end: 20160711
  5. PANTOPRAZOLE [Concomitant]
     Active Substance: PANTOPRAZOLE
     Route: 042
     Dates: start: 20161002, end: 20161007
  6. IPRATROPIUM BROMIDE MONOHYDRATE [Concomitant]
     Active Substance: IPRATROPIUM BROMIDE
     Route: 065
     Dates: start: 20161002, end: 20161003
  7. CLINDAMYCIN. [Concomitant]
     Active Substance: CLINDAMYCIN
     Indication: PROPHYLAXIS
     Route: 065
     Dates: start: 20160815, end: 20160824
  8. ALECTINIB. [Suspect]
     Active Substance: ALECTINIB
     Dosage: DOSE OF LAST STUDY DRUG ADMINISTERED : 450 MG
     Route: 048
     Dates: start: 20160811, end: 20161002
  9. SCOPOLAMINE BUTYLBROMIDE [Concomitant]
     Active Substance: SCOPOLAMINE
     Indication: GASTROINTESTINAL PAIN
     Route: 065
     Dates: start: 20160623, end: 20160711
  10. SCOPOLAMINE BUTYLBROMIDE [Concomitant]
     Active Substance: SCOPOLAMINE
     Indication: ABDOMINAL PAIN UPPER
     Route: 065
     Dates: start: 20160711
  11. PANTOPRAZOLE [Concomitant]
     Active Substance: PANTOPRAZOLE
     Indication: ACUTE KIDNEY INJURY
     Route: 042
     Dates: start: 20160724, end: 20160815
  12. IPRATROPIUM BROMIDE MONOHYDRATE [Concomitant]
     Active Substance: IPRATROPIUM BROMIDE
     Indication: DYSPNOEA
     Route: 065
     Dates: start: 20160711, end: 20160711
  13. MOXIFLOXACIN. [Concomitant]
     Active Substance: MOXIFLOXACIN
     Indication: DYSPNOEA
     Route: 065
     Dates: start: 20160711
  14. SALMETEROL [Concomitant]
     Active Substance: SALMETEROL
     Indication: DYSPNOEA
     Route: 065
     Dates: start: 20160711
  15. GABAPENTIN. [Concomitant]
     Active Substance: GABAPENTIN
     Indication: NEUROPATHY PERIPHERAL
     Route: 065
     Dates: start: 20160721, end: 20160723
  16. PANTOPRAZOLE [Concomitant]
     Active Substance: PANTOPRAZOLE
     Indication: ACUTE KIDNEY INJURY
     Route: 065
     Dates: start: 20160622, end: 20160711
  17. METHYLPREDNISOLONE. [Concomitant]
     Active Substance: METHYLPREDNISOLONE
     Indication: DYSPNOEA
     Route: 065
     Dates: start: 20160711
  18. PANTOPRAZOLE [Concomitant]
     Active Substance: PANTOPRAZOLE
     Indication: ABDOMINAL PAIN UPPER
     Route: 042
     Dates: start: 20160723, end: 20160723
  19. IPRATROPIUM BROMIDE MONOHYDRATE [Concomitant]
     Active Substance: IPRATROPIUM BROMIDE
     Indication: ACUTE KIDNEY INJURY
     Route: 065
     Dates: start: 20160723, end: 20160723
  20. BUDEZONID [Concomitant]
     Indication: DYSPNOEA
     Route: 065
     Dates: start: 20160711, end: 20160711
  21. MOXIFLOXACIN. [Concomitant]
     Active Substance: MOXIFLOXACIN
     Indication: PNEUMONIA
     Route: 065
     Dates: start: 20160830, end: 20161230

REACTIONS (3)
  - Acute kidney injury [Recovered/Resolved]
  - Acute kidney injury [Recovered/Resolved]
  - Pneumonia [Recovered/Resolved]

NARRATIVE: CASE EVENT DATE: 20160723
